FAERS Safety Report 4667023-9 (Version None)
Quarter: 2005Q2

REPORT INFORMATION
  Report Type: 
  Country: None (occurrence: None)
  Receive Date: 20050520
  Receipt Date: 20040409
  Transmission Date: 20051028
  Serious: Yes (Other)
  Sender: FDA-Public Use
  Company Number: PHEH2004US04093

PATIENT
  Age: 56 Year
  Sex: Female

DRUGS (15)
  1. MS CONTIN [Concomitant]
     Indication: BONE PAIN
     Dosage: 60 MG, TID
  2. PRILOSEC [Concomitant]
     Indication: GASTROOESOPHAGEAL REFLUX DISEASE
     Dosage: 20 UNK, BID
  3. PHENOBARBITAL [Concomitant]
     Indication: CONVULSION
     Dosage: 30 MG, QD
  4. EVISTA [Concomitant]
     Indication: ORAL CONTRACEPTION
     Dosage: 60 MG, QD
     Dates: start: 19950101
  5. ACTOS [Concomitant]
     Indication: DIABETES MELLITUS
     Dosage: 30 MG, QD
  6. TENORMIN [Concomitant]
     Indication: HYPERTENSION
     Dosage: 25 MG, QD
  7. FOLIC ACID [Concomitant]
  8. ZOMETA [Suspect]
     Dosage: UNK, ONCE/SINGLE
     Dates: start: 20030106, end: 20030106
  9. EPOETIN ALFA [Concomitant]
     Dosage: 10,000 TO 6,000 UNITS X 10
     Dates: start: 20010402, end: 20020817
  10. LORAZEPAM [Concomitant]
     Dosage: 1 MG  X 12 TREATMENTS
     Route: 042
     Dates: start: 20020404, end: 20030731
  11. CYANOCOBALAMIN [Concomitant]
     Dosage: 1000 MCG X 7 TREATMENTS
     Dates: start: 20020829, end: 20030731
  12. DIPHENHYDRAMINE HCL [Concomitant]
     Dosage: 50 MG, ONCE/SINGLE
     Dates: start: 20030120, end: 20030120
  13. ONDANSETRON [Concomitant]
     Dosage: 8-32 MG OVER 15-30 MINUTES
     Dates: start: 20011109, end: 20030731
  14. PROCHLORPERAZINE [Concomitant]
     Dosage: 10MG OVER 15 MINUTES
     Dates: start: 20010402, end: 20010428
  15. AREDIA [Suspect]
     Dosage: 60-90 MG, QMO OR Q3W
     Route: 042
     Dates: start: 19950906, end: 20030731

REACTIONS (3)
  - GINGIVAL DISORDER [None]
  - OSTEONECROSIS [None]
  - TOOTH EXTRACTION [None]
